FAERS Safety Report 7108318-9 (Version None)
Quarter: 2010Q4

REPORT INFORMATION
  Report Type: 
  Country: None (occurrence: None)
  Receive Date: 20101115
  Receipt Date: 20101115
  Transmission Date: 20110411
  Serious: No
  Sender: FDA-Public Use
  Company Number: None

PATIENT
  Age: 67 Year
  Sex: Female
  Weight: 74.3899 kg

DRUGS (1)
  1. MERCAPTOPURINE [Suspect]
     Indication: COLITIS ULCERATIVE
     Dosage: 100 MG DAILY

REACTIONS (6)
  - ALOPECIA [None]
  - CHROMATURIA [None]
  - DIARRHOEA [None]
  - NAUSEA [None]
  - RASH ERYTHEMATOUS [None]
  - VOMITING [None]
